FAERS Safety Report 4722971-6 (Version None)
Quarter: 2005Q3

REPORT INFORMATION
  Report Type: 
  Country: None (occurrence: None)
  Receive Date: 20050722
  Receipt Date: 20050412
  Transmission Date: 20060218
  Serious: Yes (Hospitalization)
  Sender: FDA-Public Use
  Company Number: US-MERCK-0504USA01832

PATIENT
  Age: 44 Year
  Sex: Female
  Weight: 155 kg

DRUGS (7)
  1. VIOXX [Suspect]
     Indication: INFLAMMATION
     Route: 048
     Dates: start: 20001101, end: 20030801
  2. VIOXX [Suspect]
     Indication: OSTEOARTHRITIS
     Route: 048
     Dates: start: 20001101, end: 20030801
  3. OXYCONTIN [Concomitant]
     Route: 065
  4. LIDODERM [Concomitant]
     Route: 065
  5. MIACALCIN [Concomitant]
     Indication: OSTEOPENIA
     Route: 065
  6. HYDROCODONE BITARTRATE [Concomitant]
     Route: 065
  7. ELAVIL [Concomitant]
     Route: 065

REACTIONS (9)
  - ANAEMIA [None]
  - ARTHRALGIA [None]
  - CARDIAC FAILURE CONGESTIVE [None]
  - GASTROOESOPHAGEAL REFLUX DISEASE [None]
  - ORTHOSTATIC HYPOTENSION [None]
  - OSTEOARTHRITIS [None]
  - PULMONARY HYPERTENSION [None]
  - SLEEP APNOEA SYNDROME [None]
  - WEIGHT DECREASED [None]
